FAERS Safety Report 8532748-1 (Version None)
Quarter: 2012Q3

REPORT INFORMATION
  Report Type: 
  Country: None (occurrence: None)
  Receive Date: 20120724
  Receipt Date: 20120719
  Transmission Date: 20120928
  Serious: Yes (Disabling, Other)
  Sender: FDA-Public Use
  Company Number: PHHY2012FR030927

PATIENT
  Sex: Male

DRUGS (1)
  1. TASIGNA [Suspect]
     Indication: CHRONIC MYELOID LEUKAEMIA
     Dosage: 600 MG, QD
     Route: 048
     Dates: start: 20081001, end: 20120302

REACTIONS (5)
  - ISCHAEMIA [None]
  - PAIN IN EXTREMITY [None]
  - BLOOD PRESSURE DECREASED [None]
  - CHEST PAIN [None]
  - INTERMITTENT CLAUDICATION [None]
